FAERS Safety Report 9169148 (Version 1)
Quarter: 2013Q1

REPORT INFORMATION
  Report Type: Spontaneous
  Country: US (occurrence: US)
  Receive Date: 20130318
  Receipt Date: 20130318
  Transmission Date: 20140127
  Serious: Yes (Death, Hospitalization)
  Sender: FDA-Public Use
  Company Number: US-ROCHE-1201002

PATIENT
  Age: 59 Year
  Sex: Male

DRUGS (5)
  1. OSELTAMIVIR [Suspect]
     Indication: INFLUENZA
     Dosage: FOR 5 DAYS
     Route: 065
  2. OSELTAMIVIR [Suspect]
     Dosage: FOR 1 DAY WAS RESTARTED PER GASTRIC TUBE
     Route: 065
  3. OSELTAMIVIR [Suspect]
     Route: 065
  4. MYCOPHENOLATE MOFETIL [Suspect]
     Indication: PRODUCT USED FOR UNKNOWN INDICATION
     Route: 065
  5. PREDNISONE [Suspect]
     Indication: PRODUCT USED FOR UNKNOWN INDICATION
     Route: 065

REACTIONS (6)
  - Pathogen resistance [Fatal]
  - Lung infiltration [Fatal]
  - Renal impairment [Fatal]
  - Pneumothorax [Fatal]
  - Aspergillus infection [Fatal]
  - Influenza [Not Recovered/Not Resolved]
